FAERS Safety Report 20986247 (Version 1)
Quarter: 2022Q2

REPORT INFORMATION
  Report Type: Spontaneous
  Country: US (occurrence: None)
  Receive Date: 20220617
  Receipt Date: 20220617
  Transmission Date: 20220721
  Serious: Yes (Other)
  Sender: FDA-Public Use
  Company Number: None

PATIENT
  Age: 74 Year
  Sex: Female

DRUGS (16)
  1. AMBRISENTAN [Suspect]
     Active Substance: AMBRISENTAN
     Indication: Pulmonary hypertension
     Dosage: 10MG QD ORAL
     Route: 048
     Dates: start: 20160713
  2. TORSEMIDE [Concomitant]
     Active Substance: TORSEMIDE
  3. METOPROLOL [Concomitant]
     Active Substance: METOPROLOL
  4. POTASSIUM CHLORIDE [Concomitant]
     Active Substance: POTASSIUM CHLORIDE
  5. CYCLOBENZAPRINE [Concomitant]
     Active Substance: CYCLOBENZAPRINE
  6. METOPROLOL [Concomitant]
     Active Substance: METOPROLOL
  7. ASPIRIN [Concomitant]
     Active Substance: ASPIRIN
  8. ENTRESTO [Concomitant]
     Active Substance: SACUBITRIL\VALSARTAN
  9. ALBUTEROL SULFATE [Concomitant]
     Active Substance: ALBUTEROL SULFATE
  10. APIXABAN [Concomitant]
     Active Substance: APIXABAN
  11. ATORVASTATIN [Suspect]
     Active Substance: ATORVASTATIN
  12. ALLOPURINOL [Concomitant]
     Active Substance: ALLOPURINOL
  13. Magnexium oxide [Concomitant]
  14. TYLENOL [Concomitant]
     Active Substance: ACETAMINOPHEN
  15. VITAMINS [Concomitant]
     Active Substance: VITAMINS
  16. Ferous sulfate [Concomitant]

REACTIONS (7)
  - Hypoxia [None]
  - Respiratory failure [None]
  - Hypervolaemia [None]
  - Cardiomyopathy [None]
  - Polyuria [None]
  - Muscle spasms [None]
  - Muscle strain [None]

NARRATIVE: CASE EVENT DATE: 20220526
